FAERS Safety Report 9928183 (Version 1)
Quarter: 2014Q1

REPORT INFORMATION
  Report Type: Spontaneous
  Country: US (occurrence: None)
  Receive Date: 20140224
  Receipt Date: 20140224
  Transmission Date: 20141002
  Serious: Yes (Death)
  Sender: FDA-Public Use
  Company Number: NL01PV14.35273

PATIENT
  Age: 57 Year
  Sex: Male

DRUGS (7)
  1. ZOLPIDEM TABLETS [Suspect]
     Route: 048
  2. DIAZEPAM (DIAZEPAM) [Suspect]
     Route: 048
  3. BUPRENORPHINE [Suspect]
     Route: 048
  4. MORPHINE [Suspect]
     Route: 048
  5. CODEINE (CODEINE) [Suspect]
     Route: 048
  6. TRAMADOL (TRAMADOL) [Suspect]
     Route: 048
  7. CHLORPHENIRAMINE [Suspect]
     Route: 048

REACTIONS (1)
  - Exposure via ingestion [None]
